FAERS Safety Report 5366524-8 (Version None)
Quarter: 2007Q2

REPORT INFORMATION
  Report Type: 
  Country: None (occurrence: None)
  Receive Date: 20070622
  Receipt Date: 20070612
  Transmission Date: 20071010
  Serious: Yes (Hospitalization)
  Sender: FDA-Public Use
  Company Number: DE-PFIZER INC-2007048963

PATIENT
  Sex: Female
  Weight: 70 kg

DRUGS (7)
  1. ATORVASTATIN CALCIUM [Suspect]
     Indication: HYPERCHOLESTEROLAEMIA
     Route: 048
     Dates: start: 20061001, end: 20070101
  2. EZETIMIBE/SIMVASTATIN [Suspect]
     Indication: HYPERCHOLESTEROLAEMIA
     Dosage: TEXT:10/20MG DAILY  TDD:10/20MG
     Route: 048
     Dates: start: 20070201, end: 20070501
  3. LOCOL [Suspect]
     Indication: HYPERCHOLESTEROLAEMIA
     Route: 048
     Dates: start: 20060501, end: 20060801
  4. BISOPROLOL FUMARATE [Concomitant]
     Route: 048
  5. THIAMAZOLE [Concomitant]
     Route: 048
  6. AQUAPHOR TABLET [Concomitant]
     Route: 048
  7. MARCUMAR [Concomitant]
     Route: 048

REACTIONS (2)
  - BLOOD CREATINE PHOSPHOKINASE INCREASED [None]
  - METABOLIC DISORDER [None]
